FAERS Safety Report 9799792 (Version 2)
Quarter: 2014Q1

REPORT INFORMATION
  Report Type: Spontaneous
  Country: US (occurrence: US)
  Receive Date: 20140106
  Receipt Date: 20140106
  Transmission Date: 20141002
  Serious: No
  Sender: FDA-Public Use
  Company Number: US-GILEAD-2010-0031828

PATIENT
  Age: 83 Year
  Sex: Male
  Weight: 75.3 kg

DRUGS (9)
  1. LETAIRIS [Suspect]
     Indication: PULMONARY ARTERIAL HYPERTENSION
     Route: 048
     Dates: start: 20100831, end: 20100907
  2. ADCIRCA [Concomitant]
  3. DIGOXIN [Concomitant]
  4. METOLAZONE [Concomitant]
  5. BENAZEPRIL [Concomitant]
  6. WARFARIN [Concomitant]
  7. FUROSEMIDE [Concomitant]
  8. VERAMYST [Concomitant]
  9. MVI [Concomitant]

REACTIONS (4)
  - Dizziness [Unknown]
  - Blood pressure increased [Unknown]
  - Dyspnoea [Unknown]
  - Sinus congestion [Recovered/Resolved]
